FAERS Safety Report 4388220-6 (Version None)
Quarter: 2004Q2

REPORT INFORMATION
  Report Type: 
  Country: None (occurrence: None)
  Receive Date: 20040625
  Receipt Date: 20040612
  Transmission Date: 20050107
  Serious: Yes (Hospitalization, Other)
  Sender: FDA-Public Use
  Company Number: 2004033139

PATIENT
  Sex: Female
  Weight: 58.9676 kg

DRUGS (8)
  1. NEURONTIN [Suspect]
     Indication: NEURALGIA
     Dosage: 1800 MG (600 MG, 3 IN 1 D), ORAL
     Route: 048
     Dates: start: 20030201, end: 20030501
  2. ROFECOXIB [Suspect]
     Indication: POST HERPETIC NEURALGIA
  3. SIMVASTATIN [Concomitant]
  4. SERETIDE MITE (FLUTICASONE PROPIONATE, SALMETEROL XINAFOATE) [Concomitant]
  5. PANTOPRAZOLE (PANTOPRAZOLE) [Concomitant]
  6. MONTELUKAST SODIUM (MONTELUKAST SODIUM) [Concomitant]
  7. SALBUTAMOL (SALBUTAMOL) [Concomitant]
  8. FLUOXETINE HYDROCHLORIDE (FLUOXETINE HYDROCHLORIDE) [Concomitant]

REACTIONS (9)
  - ASTHENIA [None]
  - BEDRIDDEN [None]
  - BLOOD TEST ABNORMAL [None]
  - HYPOTENSION [None]
  - INTERSTITIAL LUNG DISEASE [None]
  - MOBILITY DECREASED [None]
  - PARALYSIS [None]
  - PNEUMONITIS [None]
  - RESPIRATORY DISORDER [None]
